FAERS Safety Report 12672947 (Version 2)
Quarter: 2016Q3

REPORT INFORMATION
  Report Type: Report from Study
  Country: CA (occurrence: CA)
  Receive Date: 20160822
  Receipt Date: 20160922
  Transmission Date: 20161109
  Serious: Yes (Hospitalization)
  Sender: FDA-Public Use
  Company Number: CA-IPSEN BIOPHARMACEUTICALS, INC.-2016-06946

PATIENT
  Age: 53 Year
  Sex: Male

DRUGS (8)
  1. SOMATULINE AUTOGEL [Suspect]
     Active Substance: LANREOTIDE ACETATE
     Indication: PANCREATIC NEUROENDOCRINE TUMOUR
     Dosage: 120 MG
     Route: 058
     Dates: start: 20160303
  2. CLONAZEPAM. [Concomitant]
     Active Substance: CLONAZEPAM
  3. CALCIUM [Concomitant]
     Active Substance: CALCIUM
  4. VITAMIN D [Concomitant]
     Active Substance: CHOLECALCIFEROL
  5. XGEVA [Concomitant]
     Active Substance: DENOSUMAB
  6. BISOPROLOL [Concomitant]
     Active Substance: BISOPROLOL
  7. ROSUVASTATIN. [Concomitant]
     Active Substance: ROSUVASTATIN
  8. LASIX [Concomitant]
     Active Substance: FUROSEMIDE
     Dates: end: 201609

REACTIONS (5)
  - Hypokalaemia [Not Recovered/Not Resolved]
  - Diabetes mellitus [Not Recovered/Not Resolved]
  - Hypertension [Not Recovered/Not Resolved]
  - Hypothyroidism [Not Recovered/Not Resolved]
  - Vision blurred [Not Recovered/Not Resolved]

NARRATIVE: CASE EVENT DATE: 20160815
